FAERS Safety Report 25933300 (Version 2)
Quarter: 2025Q4

REPORT INFORMATION
  Report Type: Report from Study
  Country: GB (occurrence: GB)
  Receive Date: 20251017
  Receipt Date: 20251030
  Transmission Date: 20260118
  Serious: Yes (Other)
  Sender: MDD OPERATIONS
  Company Number: GB-MDD US Operations-MDD202510-004241

PATIENT
  Age: 71 Year
  Sex: Male

DRUGS (5)
  1. APOMORPHINE [Suspect]
     Active Substance: APOMORPHINE
     Indication: Parkinson^s disease
     Route: 058
     Dates: start: 20250807, end: 20251003
  2. LACTULOSE [Concomitant]
     Active Substance: LACTULOSE
     Dosage: NOT PROVIDED
  3. SIMVASTATIN [Concomitant]
     Active Substance: SIMVASTATIN
     Dosage: NOT PROVIDED
  4. BENSERAZIDE HYDROCHLORIDE\LEVODOPA [Concomitant]
     Active Substance: BENSERAZIDE HYDROCHLORIDE\LEVODOPA
     Indication: Parkinson^s disease
     Dosage: NOT PROVIDED
  5. OPICAPONE [Concomitant]
     Active Substance: OPICAPONE
     Indication: Parkinson^s disease
     Dosage: NOT PROVIDED

REACTIONS (1)
  - Erectile dysfunction [Recovered/Resolved]
